FAERS Safety Report 5909903-X (Version None)
Quarter: 2008Q4

REPORT INFORMATION
  Report Type: 
  Country: None (occurrence: None)
  Receive Date: 20081007
  Receipt Date: 20080930
  Transmission Date: 20090506
  Serious: Yes (Hospitalization)
  Sender: FDA-Public Use
  Company Number: PHHY2008DE23520

PATIENT
  Sex: Female
  Weight: 84.9 kg

DRUGS (8)
  1. RASILEZ [Suspect]
     Dosage: 1 DF, QD
  2. METFORMIN HCL [Concomitant]
     Dosage: UNK
  3. ACTOS ^LILLY^ [Concomitant]
  4. TOREM [Concomitant]
     Dosage: 1 DF, QD
  5. AMLODIPINE [Concomitant]
     Dosage: 1 DF, QD
  6. ATACAND [Concomitant]
     Dosage: 1 DF, QD
  7. BELOC-ZOC FORTE [Concomitant]
     Dosage: 1 DF, QD
  8. FENOFIBRATE [Concomitant]
     Dosage: 1 DF, QD

REACTIONS (2)
  - GLOSSODYNIA [None]
  - LIP SWELLING [None]
